FAERS Safety Report 9315691 (Version 1)
Quarter: 2013Q2

REPORT INFORMATION
  Report Type: Spontaneous
  Country: US (occurrence: US)
  Receive Date: 20130529
  Receipt Date: 20130529
  Transmission Date: 20140414
  Serious: Yes (Hospitalization)
  Sender: FDA-Public Use
  Company Number: US-ELI_LILLY_AND_COMPANY-US201305006802

PATIENT
  Sex: Female

DRUGS (1)
  1. HUMALOG LISPRO [Suspect]
     Indication: BLOOD GLUCOSE INCREASED
     Dosage: UNK, UNKNOWN

REACTIONS (4)
  - Blood glucose increased [Unknown]
  - Nasopharyngitis [Unknown]
  - Blood glucose increased [Unknown]
  - Blood glucose decreased [Unknown]
